FAERS Safety Report 9848611 (Version 1)
Quarter: 2013Q4

REPORT INFORMATION
  Report Type: Spontaneous
  Country: US (occurrence: None)
  Receive Date: 20131224
  Receipt Date: 20131224
  Transmission Date: 20140711
  Serious: Yes (Other)
  Sender: FDA-Public Use
  Company Number: PHEH2013US000578

PATIENT
  Age: 73 Year
  Sex: Female

DRUGS (3)
  1. LETROZOLE [Suspect]
  2. FASLODEX [Suspect]
     Dosage: 50 MG, TWICE MONTHLY
  3. XGEVA [Suspect]
     Dosage: 250 MG, QMO

REACTIONS (2)
  - Breast cancer metastatic [None]
  - Metastases to stomach [None]
